FAERS Safety Report 8043620-8 (Version None)
Quarter: 2012Q1

REPORT INFORMATION
  Report Type: 
  Country: None (occurrence: None)
  Receive Date: 20120112
  Receipt Date: 20110922
  Transmission Date: 20120608
  Serious: Yes (Death)
  Sender: FDA-Public Use
  Company Number: PHHO2010IT17471

PATIENT
  Sex: Female

DRUGS (1)
  1. EVEROLIMUS [Suspect]
     Indication: TRANSPLANT
     Dosage: UNK
     Route: 048

REACTIONS (1)
  - CEREBRAL HAEMORRHAGE [None]
